FAERS Safety Report 8960737 (Version 2)
Quarter: 2013Q1

REPORT INFORMATION
  Report Type: Spontaneous
  Country: JP (occurrence: None)
  Receive Date: 20121130
  Receipt Date: 20130211
  Transmission Date: 20140127
  Serious: Yes (Other)
  Sender: FDA-Public Use
  Company Number: 2012S1001554

PATIENT
  Age: 75 Year
  Sex: Female

DRUGS (5)
  1. LIVALO [Suspect]
     Indication: HYPERCHOLESTEROLAEMIA
     Route: 048
  2. REMODELLIN [Concomitant]
  3. CO-DIOVAN [Concomitant]
  4. EVISTA [Concomitant]
  5. MELOXICAM [Concomitant]

REACTIONS (2)
  - Haemolytic anaemia [None]
  - Coombs test positive [None]
